FAERS Safety Report 9193694 (Version 4)
Quarter: 2013Q3

REPORT INFORMATION
  Report Type: Report from Study
  Country: FR (occurrence: FR)
  Receive Date: 20130327
  Receipt Date: 20130701
  Transmission Date: 20140515
  Serious: Yes (Death, Other)
  Sender: FDA-Public Use
  Company Number: FR-CELGENEUS-056-21880-13032897

PATIENT
  Age: 78 Year
  Sex: Male
  Weight: 68 kg

DRUGS (3)
  1. REVLIMID\PLACEBO [Suspect]
     Indication: DIFFUSE LARGE B-CELL LYMPHOMA
     Dosage: 25 MILLIGRAM
     Route: 048
     Dates: start: 20110524, end: 20110802
  2. FLUINDIONE [Concomitant]
     Indication: CARDIAC FAILURE
     Route: 065
     Dates: start: 20111121, end: 20121203
  3. ASPIRINE [Concomitant]
     Indication: PRODUCT USED FOR UNKNOWN INDICATION
     Route: 065

REACTIONS (1)
  - Oesophageal adenocarcinoma [Fatal]
